FAERS Safety Report 4717537-8 (Version None)
Quarter: 2005Q3

REPORT INFORMATION
  Report Type: 
  Country: None (occurrence: None)
  Receive Date: 20050715
  Receipt Date: 20050706
  Transmission Date: 20060218
  Serious: Yes (Other)
  Sender: FDA-Public Use
  Company Number: 2005AD000075

PATIENT
  Age: 50 Year
  Sex: Female
  Weight: 83.9154 kg

DRUGS (2)
  1. KEFLEX [Suspect]
     Indication: STAPHYLOCOCCAL INFECTION
     Dosage: 500 MG;QID
     Dates: start: 20050614, end: 20050616
  2. EFFEXOR [Concomitant]

REACTIONS (7)
  - BLISTER [None]
  - ERYTHEMA [None]
  - PRURITUS [None]
  - SCAR [None]
  - SKIN DISCOLOURATION [None]
  - SKIN EXFOLIATION [None]
  - SKIN IRRITATION [None]
